FAERS Safety Report 15058335 (Version 1)
Quarter: 2018Q2

REPORT INFORMATION
  Report Type: Spontaneous
  Country: IR (occurrence: IR)
  Receive Date: 20180625
  Receipt Date: 20180625
  Transmission Date: 20180711
  Serious: Yes (Death, Hospitalization, Other)
  Sender: FDA-Public Use
  Company Number: IR-SUN PHARMACEUTICAL INDUSTRIES LTD-2018RR-176519

PATIENT
  Age: 25 Year
  Sex: Male

DRUGS (1)
  1. AMLODIPINE [Suspect]
     Active Substance: AMLODIPINE BESYLATE
     Indication: PRODUCT USED FOR UNKNOWN INDICATION
     Dosage: 450 MG, 90 TABLETS-5 MG EACH
     Route: 048

REACTIONS (11)
  - Rhabdomyolysis [Unknown]
  - Hypercalcaemia [Unknown]
  - Nodal rhythm [Unknown]
  - Shock [Unknown]
  - Multiple organ dysfunction syndrome [Unknown]
  - Hepatic failure [Unknown]
  - Depressed level of consciousness [Unknown]
  - Overdose [Fatal]
  - Metabolic acidosis [Unknown]
  - Pulmonary oedema [Recovered/Resolved]
  - Renal failure [Unknown]
